FAERS Safety Report 6610011-3 (Version None)
Quarter: 2010Q1

REPORT INFORMATION
  Report Type: 
  Country: None (occurrence: None)
  Receive Date: 20100302
  Receipt Date: 20100222
  Transmission Date: 20100710
  Serious: Yes (Other)
  Sender: FDA-Public Use
  Company Number: US-ASTRAZENECA-2010SE07558

PATIENT
  Age: 74 Year
  Sex: Male
  Weight: 61.2 kg

DRUGS (21)
  1. CRESTOR [Suspect]
     Indication: BLOOD CHOLESTEROL INCREASED
     Route: 048
  2. CRESTOR [Suspect]
     Route: 048
     Dates: start: 20090101, end: 20100101
  3. TRICOR [Concomitant]
     Indication: BLOOD CHOLESTEROL INCREASED
  4. VITAMIN B-12 [Concomitant]
  5. VITAMIN B COMPLEX CAP [Concomitant]
  6. VITAMIN C [Concomitant]
  7. VITAMIN E [Concomitant]
  8. FISH OIL [Concomitant]
  9. GINKO BOLIMA [Concomitant]
  10. AGRONOX [Concomitant]
     Indication: CEREBROVASCULAR ACCIDENT
  11. FASOMAX [Concomitant]
     Indication: OSTEOPOROSIS
  12. CALTRATE [Concomitant]
  13. RANIDIDINE [Concomitant]
     Indication: GASTRIC ULCER
  14. LORAZEPAM [Concomitant]
     Indication: ANXIETY
  15. FOLIC ACID [Concomitant]
  16. GLUCOSAMINE CHONDROITIN [Concomitant]
  17. POTASSIUM [Concomitant]
  18. MAGNESIUM [Concomitant]
  19. LUTEIN [Concomitant]
     Indication: GLAUCOMA
  20. EYE DROPS [Concomitant]
     Indication: GLAUCOMA
  21. VITAMIN D [Concomitant]

REACTIONS (2)
  - CEREBROVASCULAR ACCIDENT [None]
  - HYPOTONIA [None]
